FAERS Safety Report 17662078 (Version 1)
Quarter: 2020Q2

REPORT INFORMATION
  Report Type: Report from Study
  Country: US (occurrence: US)
  Receive Date: 20200413
  Receipt Date: 20200413
  Transmission Date: 20200713
  Serious: Yes (Death, Other)
  Sender: FDA-Public Use
  Company Number: US-MYLANLABS-2020M1035688

PATIENT
  Age: 78 Year
  Sex: Female

DRUGS (1)
  1. FULPHILA [Suspect]
     Active Substance: PEGFILGRASTIM-JMDB
     Indication: AGRANULOCYTOSIS
     Dosage: UNK
     Route: 065
     Dates: start: 20190301, end: 20190503

REACTIONS (1)
  - Death [Fatal]

NARRATIVE: CASE EVENT DATE: 20200405
